FAERS Safety Report 13355835 (Version 1)
Quarter: 2017Q1

REPORT INFORMATION
  Report Type: Spontaneous
  Country: US (occurrence: US)
  Receive Date: 20170321
  Receipt Date: 20170321
  Transmission Date: 20170429
  Serious: Yes (Hospitalization, Other)
  Sender: FDA-Public Use
  Company Number: US-SUCAMPO PHARMACEUTICALS INC.-SPI201700389

PATIENT

DRUGS (3)
  1. AMITIZA [Suspect]
     Active Substance: LUBIPROSTONE
     Dosage: UNK
     Dates: start: 201703, end: 201703
  2. AMITIZA [Suspect]
     Active Substance: LUBIPROSTONE
     Dosage: UNK
  3. AMITIZA [Suspect]
     Active Substance: LUBIPROSTONE
     Indication: CONSTIPATION
     Dosage: UNK
     Dates: start: 20170307, end: 201703

REACTIONS (1)
  - Haematochezia [Unknown]

NARRATIVE: CASE EVENT DATE: 201703
